FAERS Safety Report 24114573 (Version 1)
Quarter: 2024Q3

REPORT INFORMATION
  Report Type: Spontaneous
  Country: ES (occurrence: ES)
  Receive Date: 20240720
  Receipt Date: 20240720
  Transmission Date: 20241016
  Serious: Yes (Other)
  Sender: TAKEDA
  Company Number: ES-TAKEDA-2024TUS072007

PATIENT
  Age: 57 Year
  Sex: Female

DRUGS (1)
  1. ALOGLIPTIN [Suspect]
     Active Substance: ALOGLIPTIN
     Indication: Type 2 diabetes mellitus
     Dosage: UNK
     Route: 048

REACTIONS (2)
  - Renal tubular necrosis [Recovering/Resolving]
  - Tubulointerstitial nephritis [Unknown]
